FAERS Safety Report 20726278 (Version 1)
Quarter: 2022Q2

REPORT INFORMATION
  Report Type: Report from Study
  Country: SE (occurrence: SE)
  Receive Date: 20220419
  Receipt Date: 20220419
  Transmission Date: 20220721
  Serious: Yes (Hospitalization)
  Sender: FDA-Public Use
  Company Number: SE-ABBVIE-22K-150-4363896-00

PATIENT
  Sex: Female

DRUGS (2)
  1. CARBIDOPA\LEVODOPA [Suspect]
     Active Substance: CARBIDOPA\LEVODOPA
     Indication: Parkinson^s disease
     Dosage: THERAPY DURATION: REMAINS AT 16H
     Route: 050
     Dates: start: 20170221
  2. CARBIDOPA\LEVODOPA [Suspect]
     Active Substance: CARBIDOPA\LEVODOPA
     Dosage: CURRENT DOSAGES: MD 4.6ML, CD 1.5ML/H, ED 0.1ML (EVERY 30 MINUTES).
     Route: 050
     Dates: start: 20220413

REACTIONS (2)
  - Drug ineffective [Recovering/Resolving]
  - Device dislocation [Recovered/Resolved]
